FAERS Safety Report 6957945-8 (Version None)
Quarter: 2010Q3

REPORT INFORMATION
  Report Type: 
  Country: None (occurrence: None)
  Receive Date: 20100831
  Receipt Date: 20100827
  Transmission Date: 20110219
  Serious: Yes (Other)
  Sender: FDA-Public Use
  Company Number: AU-EISAI INC.-E2090-00546-CLI-AU

PATIENT
  Sex: Female
  Weight: 56.4 kg

DRUGS (4)
  1. E2090/CARBAMAZEPINE [Suspect]
     Indication: EPILEPSY
     Dosage: DOUBLE BLIND
     Route: 048
     Dates: start: 20080819, end: 20080903
  2. E2090/CARBAMAZEPINE [Suspect]
     Dosage: DOUBLE BLIND
     Route: 048
     Dates: start: 20080903, end: 20080910
  3. FEMOSTON [Concomitant]
     Route: 048
     Dates: start: 20030101
  4. PROVERA [Concomitant]
     Route: 048
     Dates: start: 20030101

REACTIONS (1)
  - PURPURA [None]
